FAERS Safety Report 4324145-X (Version None)
Quarter: 2004Q1

REPORT INFORMATION
  Report Type: 
  Country: None (occurrence: None)
  Receive Date: 20040326
  Receipt Date: 20031230
  Transmission Date: 20041129
  Serious: No
  Sender: FDA-Public Use
  Company Number: US-GLAXOSMITHKLINE-A0490853A

PATIENT
  Age: 79 Year
  Sex: Female

DRUGS (1)
  1. ADVAIR DISKUS 100/50 [Suspect]
     Dosage: 1PUFF VARIABLE DOSE
     Route: 055

REACTIONS (5)
  - BRONCHITIS [None]
  - CHOKING SENSATION [None]
  - COUGH [None]
  - DRY THROAT [None]
  - DYSPHONIA [None]
